FAERS Safety Report 10184225 (Version 1)
Quarter: 2014Q2

REPORT INFORMATION
  Report Type: Spontaneous
  Country: IT (occurrence: IT)
  Receive Date: 20140520
  Receipt Date: 20140520
  Transmission Date: 20141212
  Serious: Yes (Hospitalization)
  Sender: FDA-Public Use
  Company Number: PHHY2014IT059598

PATIENT
  Sex: Female

DRUGS (4)
  1. FUROSEMIDE [Suspect]
     Indication: HYPERTENSION
     Dosage: 125 MG, QD
     Route: 048
     Dates: start: 20131213, end: 20140113
  2. ATENOLOL [Concomitant]
  3. TELMISARTAN [Concomitant]
  4. METFORMIN [Concomitant]

REACTIONS (1)
  - Renal failure acute [Not Recovered/Not Resolved]
